FAERS Safety Report 7301008-9 (Version None)
Quarter: 2011Q1

REPORT INFORMATION
  Report Type: 
  Country: None (occurrence: None)
  Receive Date: 20110111
  Receipt Date: 20091203
  Transmission Date: 20110831
  Serious: Yes (Other)
  Sender: FDA-Public Use
  Company Number: 2009BH018748

PATIENT
  Age: 19 Year
  Weight: 60 kg

DRUGS (10)
  1. VANCOMYCIN [Suspect]
     Indication: PNEUMONIA
     Dosage: 500 MG; EVERY 8 HR; IV, 750 MG; EVERY 8 HR; IV
     Route: 042
     Dates: start: 20091207, end: 20091207
  2. VANCOMYCIN [Suspect]
     Indication: PNEUMONIA
     Dosage: 500 MG; EVERY 8 HR; IV, 750 MG; EVERY 8 HR; IV
     Route: 042
     Dates: start: 20091205, end: 20091205
  3. VANCOMYCIN HCL [Suspect]
  4. ZOSYN [Concomitant]
  5. ALBUTEROL [Concomitant]
  6. TESSALON [Concomitant]
  7. VANCOMYCIN HCL [Suspect]
     Indication: PNEUMONIA
     Dosage: SEE IMAGE, IV
     Route: 042
     Dates: start: 20091201, end: 20091201
  8. VANCOMYCIN HCL [Suspect]
     Indication: PNEUMONIA
     Dosage: SEE IMAGE, IV
     Route: 042
     Dates: start: 20091201, end: 20091201
  9. VANCOMYCIN HCL [Suspect]
     Indication: PNEUMONIA
     Dosage: SEE IMAGE, IV
     Route: 042
     Dates: start: 20091201, end: 20091201
  10. VANCOMYCIN HCL [Suspect]
     Indication: PNEUMONIA
     Dosage: SEE IMAGE, IV
     Route: 042
     Dates: start: 20091202, end: 20091202

REACTIONS (1)
  - RENAL FAILURE [None]
